FAERS Safety Report 16773108 (Version 7)
Quarter: 2021Q3

REPORT INFORMATION
  Report Type: Report from Study
  Country: FR (occurrence: FR)
  Receive Date: 20190904
  Receipt Date: 20210913
  Transmission Date: 20211014
  Serious: Yes (Hospitalization, Other)
  Sender: FDA-Public Use
  Company Number: FR-INCYTE CORPORATION-2019IN008804

PATIENT

DRUGS (13)
  1. JAKAVI [Suspect]
     Active Substance: RUXOLITINIB
     Dosage: 20 MG DAILY
     Route: 048
     Dates: start: 20190830, end: 20190902
  2. APIXABAN [Concomitant]
     Active Substance: APIXABAN
     Dosage: 5 MG
     Route: 065
     Dates: start: 20190704
  3. INNOHEP [Concomitant]
     Active Substance: TINZAPARIN SODIUM
     Indication: PRODUCT USED FOR UNKNOWN INDICATION
     Dosage: 11000 IU
     Route: 058
     Dates: start: 20190627, end: 20190701
  4. SPIRONOLACTONE. [Concomitant]
     Active Substance: SPIRONOLACTONE
     Indication: HYPERTENSION
     Dosage: 25 MG
     Route: 048
     Dates: start: 20170607
  5. HYDROXYUREA. [Suspect]
     Active Substance: HYDROXYUREA
     Indication: ESSENTIAL THROMBOCYTHAEMIA
     Dosage: 500 MG
     Route: 048
     Dates: start: 20170817
  6. ANAGRELIDE. [Suspect]
     Active Substance: ANAGRELIDE HYDROCHLORIDE
     Indication: PLATELET COUNT INCREASED
     Dosage: 0.5 MG
     Route: 048
     Dates: start: 20190524, end: 20190822
  7. DARBEPOETIN ALFA [Concomitant]
     Active Substance: DARBEPOETIN ALFA
     Indication: ANAEMIA
     Dosage: 300 UG
     Route: 058
     Dates: start: 20190604
  8. APIXABAN [Concomitant]
     Active Substance: APIXABAN
     Indication: THROMBOSIS PROPHYLAXIS
     Dosage: 10 MG
     Route: 048
     Dates: start: 20170519
  9. PREDNISONE. [Concomitant]
     Active Substance: PREDNISONE
     Indication: CHEMOTHERAPY
     Dosage: 20 MG
     Route: 048
     Dates: start: 20190524
  10. BISOPROLOL [Concomitant]
     Active Substance: BISOPROLOL
     Indication: HYPERTENSION
     Dosage: 7.5 MG
     Route: 048
     Dates: start: 20170519
  11. ALLOPURINOL. [Concomitant]
     Active Substance: ALLOPURINOL
     Indication: HYPERURICAEMIA
     Dosage: 100 MG
     Route: 048
  12. JAKAVI [Suspect]
     Active Substance: RUXOLITINIB
     Indication: MYELOFIBROSIS
     Dosage: 40 MG DAILY
     Route: 048
     Dates: start: 20190729, end: 20190816
  13. FUROSEMIDE. [Concomitant]
     Active Substance: FUROSEMIDE
     Indication: HYPERTENSION
     Dosage: 40 MG
     Route: 048
     Dates: start: 20170519

REACTIONS (4)
  - White blood cell count decreased [Unknown]
  - Cytopenia [Recovered/Resolved]
  - Haemoptysis [Recovered/Resolved]
  - Prothrombin time shortened [Unknown]

NARRATIVE: CASE EVENT DATE: 20190816
